FAERS Safety Report 6140039-1 (Version None)
Quarter: 2009Q2

REPORT INFORMATION
  Report Type: 
  Country: None (occurrence: None)
  Receive Date: 20090401
  Receipt Date: 20090323
  Transmission Date: 20091009
  Serious: Yes (Hospitalization)
  Sender: FDA-Public Use
  Company Number: FR-JNJFOC-20090305453

PATIENT
  Age: 65 Year
  Sex: Male

DRUGS (18)
  1. OFLOXACIN [Suspect]
     Indication: BRONCHOPULMONARY ASPERGILLOSIS
     Route: 048
  2. SYMBICORT [Suspect]
     Indication: BRONCHOPNEUMOPATHY
     Route: 045
  3. SERETIDE [Suspect]
     Indication: BRONCHOPNEUMOPATHY
     Route: 045
  4. ZECLAR [Suspect]
     Indication: BRONCHOPULMONARY ASPERGILLOSIS
     Route: 048
  5. SPORANOX [Concomitant]
     Route: 048
  6. SPORANOX [Concomitant]
     Indication: BRONCHOPULMONARY ASPERGILLOSIS
     Route: 048
  7. SPIRIVA [Concomitant]
     Indication: BRONCHOPNEUMOPATHY
     Route: 065
  8. BRICANYL [Concomitant]
     Indication: BRONCHOPNEUMOPATHY
     Route: 065
  9. BRONCHODUAL [Concomitant]
     Indication: BRONCHOPNEUMOPATHY
     Route: 065
  10. THEOSTAT [Concomitant]
     Route: 065
  11. EFFEXOR [Concomitant]
     Route: 065
  12. XANAX [Concomitant]
     Route: 065
  13. LAROXYL [Concomitant]
     Route: 065
  14. ATARAX [Concomitant]
     Route: 065
  15. IMOVANE [Concomitant]
     Route: 065
  16. REPAGLINIDE [Concomitant]
     Indication: DIABETES MELLITUS
     Route: 065
  17. TANAKAN [Concomitant]
     Route: 048
  18. ACTONEL [Concomitant]
     Route: 048

REACTIONS (9)
  - ADRENAL INSUFFICIENCY [None]
  - ASCITES [None]
  - DYSPNOEA [None]
  - ENDOCRINE NEOPLASM MALIGNANT [None]
  - LIVER INJURY [None]
  - MUSCULAR WEAKNESS [None]
  - OEDEMA PERIPHERAL [None]
  - RHABDOMYOLYSIS [None]
  - WEIGHT INCREASED [None]
